FAERS Safety Report 9052731 (Version 3)
Quarter: 2020Q3

REPORT INFORMATION
  Report Type: Report from Study
  Country: DE (occurrence: DE)
  Receive Date: 20130207
  Receipt Date: 20200803
  Transmission Date: 20201103
  Serious: Yes (Death, Hospitalization)
  Sender: FDA-Public Use
  Company Number: DE-JNJFOC-20130200079

PATIENT
  Age: 57 Year
  Sex: Male

DRUGS (4)
  1. ORENCIA [Concomitant]
     Active Substance: ABATACEPT
  2. SIMPONI [Suspect]
     Active Substance: GOLIMUMAB
     Indication: RHEUMATOID ARTHRITIS
     Route: 058
     Dates: start: 200910, end: 201203
  3. MTX [Concomitant]
     Active Substance: METHOTREXATE SODIUM
  4. MABTHERA [Concomitant]
     Active Substance: RITUXIMAB

REACTIONS (4)
  - Haemorrhoidal haemorrhage [Unknown]
  - Granular cell tumour [Recovered/Resolved]
  - Pneumonia [Fatal]
  - Sepsis [Fatal]

NARRATIVE: CASE EVENT DATE: 20120313
